FAERS Safety Report 5423215-2 (Version None)
Quarter: 2007Q3

REPORT INFORMATION
  Report Type: 
  Country: None (occurrence: None)
  Receive Date: 20070730
  Receipt Date: 20070220
  Transmission Date: 20080115
  Serious: Yes (Other)
  Sender: FDA-Public Use
  Company Number: 200710179BWH

PATIENT
  Age: 57 Year
  Sex: Male
  Weight: 74.8435 kg

DRUGS (7)
  1. AVELOX [Suspect]
     Indication: LUNG INFECTION
     Dosage: QD, ORAL
     Route: 048
     Dates: start: 20060101
  2. AVELOX [Suspect]
     Indication: SINUSITIS
     Dosage: QD, ORAL
     Route: 048
     Dates: start: 20060101
  3. ASPIRIN [Concomitant]
  4. PREDNISONE [Concomitant]
  5. DARVOCET [Concomitant]
  6. ALBUTEROL [Concomitant]
  7. PLAVIX [Concomitant]

REACTIONS (3)
  - DEPRESSED LEVEL OF CONSCIOUSNESS [None]
  - DYSPNOEA [None]
  - HEART RATE INCREASED [None]
